FAERS Safety Report 21891291 (Version 1)
Quarter: 2023Q1

REPORT INFORMATION
  Report Type: Spontaneous
  Country: US (occurrence: None)
  Receive Date: 20230119
  Receipt Date: 20230119
  Transmission Date: 20230418
  Serious: No
  Sender: FDA-Public Use
  Company Number: None

PATIENT
  Age: 67 Year
  Sex: Female

DRUGS (1)
  1. BETASERON [Suspect]
     Active Substance: INTERFERON BETA-1B
     Dosage: OTHER FREQUENCY : OTHER;?
     Route: 058
     Dates: start: 200301, end: 202301

REACTIONS (1)
  - Disease progression [None]

NARRATIVE: CASE EVENT DATE: 20230101
